FAERS Safety Report 21765782 (Version 1)
Quarter: 2022Q4

REPORT INFORMATION
  Report Type: Spontaneous
  Country: TR (occurrence: TR)
  Receive Date: 20221222
  Receipt Date: 20221222
  Transmission Date: 20230113
  Serious: Yes (Other)
  Sender: FDA-Public Use
  Company Number: TR-BAYER-2022P030487

PATIENT
  Sex: Female

DRUGS (1)
  1. EYLEA [Suspect]
     Active Substance: AFLIBERCEPT
     Indication: Age-related macular degeneration
     Dosage: 2 MG, SOLUTION FOR INJECTION, STRENGTH: 40MG/ML
     Route: 031

REACTIONS (2)
  - Keratic precipitates [Unknown]
  - Anterior chamber disorder [Unknown]
